FAERS Safety Report 11103316 (Version 1)
Quarter: 2015Q2

REPORT INFORMATION
  Report Type: Spontaneous
  Country: US (occurrence: US)
  Receive Date: 20150511
  Receipt Date: 20150511
  Transmission Date: 20150821
  Serious: No
  Sender: FDA-Public Use
  Company Number: US-ASTRAZENECA-2015SE41285

PATIENT
  Sex: Female

DRUGS (2)
  1. BYDUREON [Suspect]
     Active Substance: EXENATIDE
     Route: 058
     Dates: start: 20150422
  2. BENADRYL [Concomitant]
     Active Substance: DIPHENHYDRAMINE HYDROCHLORIDE
     Route: 048

REACTIONS (7)
  - Pruritus [Recovering/Resolving]
  - Pain [Unknown]
  - Insomnia [Unknown]
  - Joint swelling [Unknown]
  - Skin exfoliation [Unknown]
  - Limb discomfort [Unknown]
  - Myalgia [Unknown]
